FAERS Safety Report 13159825 (Version 1)
Quarter: 2017Q1

REPORT INFORMATION
  Report Type: Report from Study
  Country: US (occurrence: US)
  Receive Date: 20170127
  Receipt Date: 20170127
  Transmission Date: 20170428
  Serious: Yes (Hospitalization, Other)
  Sender: FDA-Public Use
  Company Number: PHHO2014US020513

PATIENT
  Age: 64 Year
  Sex: Female
  Weight: 59.4 kg

DRUGS (4)
  1. TYLENOL [Concomitant]
     Active Substance: ACETAMINOPHEN
     Indication: PRODUCT USED FOR UNKNOWN INDICATION
     Route: 065
  2. ASPIRIN. [Concomitant]
     Active Substance: ASPIRIN
     Indication: PRODUCT USED FOR UNKNOWN INDICATION
     Route: 065
  3. GSK2141795 [Suspect]
     Active Substance: UPROSERTIB
     Indication: INTRAOCULAR MELANOMA
     Dosage: 50 MG, QD
     Route: 048
     Dates: start: 20140522, end: 20140609
  4. GSK1120212 [Suspect]
     Active Substance: TRAMETINIB
     Indication: INTRAOCULAR MELANOMA
     Dosage: 1.5 MG, QD
     Route: 048
     Dates: start: 20140522

REACTIONS (3)
  - Hypertension [Recovered/Resolved]
  - Atrial fibrillation [Recovered/Resolved]
  - Cerebrovascular accident [Recovered/Resolved]

NARRATIVE: CASE EVENT DATE: 20140605
